FAERS Safety Report 17888458 (Version 2)
Quarter: 2020Q3

REPORT INFORMATION
  Report Type: Spontaneous
  Country: JP (occurrence: JP)
  Receive Date: 20200612
  Receipt Date: 20200807
  Transmission Date: 20201103
  Serious: No
  Sender: FDA-Public Use
  Company Number: JP-ASTRAZENECA-2019SF79000

PATIENT
  Age: 73 Year
  Sex: Female
  Weight: 68 kg

DRUGS (14)
  1. LYNPARZA [Suspect]
     Active Substance: OLAPARIB
     Indication: BREAST CANCER
     Route: 048
     Dates: start: 20190305, end: 20190318
  2. TAPENTA [Concomitant]
     Active Substance: TAPENTADOL HYDROCHLORIDE
     Indication: METASTASES TO BONE
     Route: 048
     Dates: start: 20181226
  3. TAKECAB [Concomitant]
     Active Substance: VONOPRAZAN FUMARATE
     Indication: PEPTIC ULCER
     Route: 048
     Dates: start: 20181210, end: 20190121
  4. CALONAL [Concomitant]
     Active Substance: ACETAMINOPHEN
     Indication: METASTASES TO BONE
     Route: 048
     Dates: start: 20190624
  5. LYNPARZA [Suspect]
     Active Substance: OLAPARIB
     Indication: BREAST CANCER
     Route: 048
     Dates: start: 20190218, end: 20190304
  6. AVAPRO [Concomitant]
     Active Substance: IRBESARTAN
     Indication: CARDIOTOXICITY
     Route: 048
  7. OXINORM [Concomitant]
     Indication: METASTASES TO BONE
     Dosage: 2.5 MG AS REQUIRED
     Route: 048
     Dates: start: 20181225
  8. ZETIA [Concomitant]
     Active Substance: EZETIMIBE
     Indication: HYPERLIPIDAEMIA
     Route: 048
  9. LYRICA [Concomitant]
     Active Substance: PREGABALIN
     Indication: METASTASES TO BONE
     Route: 048
     Dates: start: 20190521, end: 20190624
  10. LYNPARZA [Suspect]
     Active Substance: OLAPARIB
     Indication: BREAST CANCER
     Route: 048
     Dates: start: 20190401, end: 20200601
  11. SYMPROIC [Concomitant]
     Active Substance: NALDEMEDINE
     Indication: CONSTIPATION PROPHYLAXIS
     Route: 048
     Dates: start: 20181228, end: 20190624
  12. MELOXICAM. [Concomitant]
     Active Substance: MELOXICAM
     Indication: METASTASES TO BONE
     Route: 048
     Dates: start: 20181221, end: 20190121
  13. METOCLOPRAMIDE. [Concomitant]
     Active Substance: METOCLOPRAMIDE
     Indication: NAUSEA
     Dosage: 5 MG AS REQUIRED
     Route: 048
     Dates: start: 20181228
  14. LYNPARZA [Suspect]
     Active Substance: OLAPARIB
     Indication: BREAST CANCER
     Route: 048
     Dates: start: 20181230, end: 20190128

REACTIONS (3)
  - Neutrophil count decreased [Recovered/Resolved]
  - Anaemia [Recovered/Resolved]
  - Platelet count decreased [Recovered/Resolved]

NARRATIVE: CASE EVENT DATE: 20190121
